FAERS Safety Report 9172699 (Version 1)
Quarter: 2013Q1

REPORT INFORMATION
  Report Type: Spontaneous
  Country: FR (occurrence: FR)
  Receive Date: 20130319
  Receipt Date: 20130319
  Transmission Date: 20140127
  Serious: Yes (Life-Threatening)
  Sender: FDA-Public Use
  Company Number: FR-BAXTER-2013BAX009428

PATIENT
  Age: 26 Year
  Sex: Female

DRUGS (6)
  1. ENDOXAN 2000 MG, LYOPHILISAT POUR SOLUTION INJECTABLE [Suspect]
     Indication: MULTIPLE SCLEROSIS
     Route: 042
     Dates: start: 200505, end: 200511
  2. TYSABRI [Suspect]
     Indication: MULTIPLE SCLEROSIS
     Route: 042
     Dates: start: 200710, end: 201206
  3. MITOXANTRONE [Suspect]
     Indication: MULTIPLE SCLEROSIS
     Route: 042
     Dates: start: 200402, end: 200407
  4. BETAFERON [Concomitant]
     Indication: PRODUCT USED FOR UNKNOWN INDICATION
     Route: 065
  5. LAMICTAL [Concomitant]
     Indication: PRODUCT USED FOR UNKNOWN INDICATION
     Route: 065
  6. COUMADINE [Concomitant]
     Indication: PRODUCT USED FOR UNKNOWN INDICATION
     Route: 065

REACTIONS (1)
  - Invasive ductal breast carcinoma [Not Recovered/Not Resolved]
